FAERS Safety Report 12217833 (Version 1)
Quarter: 2016Q1

REPORT INFORMATION
  Report Type: Spontaneous
  Country: US (occurrence: None)
  Receive Date: 20160328
  Receipt Date: 20160328
  Transmission Date: 20160526
  Serious: No
  Sender: FDA-Public Use
  Company Number: None

PATIENT
  Age: 51 Year
  Sex: Female

DRUGS (11)
  1. HARVONI [Suspect]
     Active Substance: LEDIPASVIR\SOFOSBUVIR
     Indication: HEPATITIS C
     Dosage: 90-400 TAB QD ORAL
     Route: 048
     Dates: start: 20160310
  2. VOLTAREN [Concomitant]
     Active Substance: DICLOFENAC SODIUM
  3. TURMERIC POW ROOT [Concomitant]
  4. DEPO-ESTRADI [Concomitant]
  5. CEPHALEXIN. [Concomitant]
     Active Substance: CEPHALEXIN
  6. L-METHYFOLA [Concomitant]
  7. FLURBIPROFEN. [Concomitant]
     Active Substance: FLURBIPROFEN
  8. HYDROCO/APAP [Concomitant]
     Active Substance: ACETAMINOPHEN\HYDROCODONE
  9. TESTOST CYP [Concomitant]
     Active Substance: TESTOSTERONE CYPIONATE
  10. ZOLPIDEM [Concomitant]
     Active Substance: ZOLPIDEM\ZOLPIDEM TARTRATE
  11. MANGANESE [Concomitant]
     Active Substance: MANGANESE\MANGANESE CHLORIDE

REACTIONS (3)
  - Headache [None]
  - Diarrhoea [None]
  - Palpitations [None]

NARRATIVE: CASE EVENT DATE: 201603
